FAERS Safety Report 23793453 (Version 1)
Quarter: 2024Q2

REPORT INFORMATION
  Report Type: Spontaneous
  Country: US (occurrence: US)
  Receive Date: 20240429
  Receipt Date: 20240429
  Transmission Date: 20240716
  Serious: Yes (Other)
  Sender: FDA-Public Use
  Company Number: US-BAYER-2024A058983

PATIENT

DRUGS (2)
  1. ASPIRIN [Suspect]
     Active Substance: ASPIRIN
     Dosage: UNK
  2. TYLENOL [Suspect]
     Active Substance: ACETAMINOPHEN

REACTIONS (2)
  - Malnutrition [Recovered/Resolved]
  - Foetal exposure during pregnancy [None]

NARRATIVE: CASE EVENT DATE: 20230925
